FAERS Safety Report 13729380 (Version 1)
Quarter: 2017Q3

REPORT INFORMATION
  Report Type: Spontaneous
  Country: JP (occurrence: JP)
  Receive Date: 20170707
  Receipt Date: 20170707
  Transmission Date: 20171127
  Serious: Yes (Hospitalization)
  Sender: FDA-Public Use
  Company Number: PHHY2017JP099680

PATIENT
  Sex: Female

DRUGS (2)
  1. FAMVIR [Suspect]
     Active Substance: FAMCICLOVIR
     Dosage: 500 MG, TID
     Route: 048
     Dates: start: 20170524, end: 20170524
  2. FAMVIR [Suspect]
     Active Substance: FAMCICLOVIR
     Indication: HERPES ZOSTER
     Dosage: UNK
     Route: 048
     Dates: start: 2016

REACTIONS (9)
  - Erythema [Unknown]
  - Asthenia [Recovered/Resolved]
  - Hypertension [Unknown]
  - Malaise [Unknown]
  - Muscle spasms [Unknown]
  - Tachycardia [Unknown]
  - Reduced facial expression [Recovered/Resolved]
  - Choking sensation [Recovered/Resolved]
  - Feeling abnormal [Unknown]

NARRATIVE: CASE EVENT DATE: 2016
